FAERS Safety Report 6285909-9 (Version None)
Quarter: 2009Q3

REPORT INFORMATION
  Report Type: 
  Country: None (occurrence: None)
  Receive Date: 20090728
  Receipt Date: 20090716
  Transmission Date: 20100115
  Serious: Yes (Hospitalization)
  Sender: FDA-Public Use
  Company Number: FR-JNJFOC-20060302814

PATIENT
  Age: 54 Year
  Sex: Female

DRUGS (12)
  1. REMICADE [Suspect]
     Route: 042
  2. REMICADE [Suspect]
     Route: 042
  3. REMICADE [Suspect]
     Route: 042
  4. REMICADE [Suspect]
     Route: 042
  5. REMICADE [Suspect]
     Indication: ANKYLOSING SPONDYLITIS
     Route: 042
  6. REMICADE [Suspect]
     Indication: PSORIATIC ARTHROPATHY
     Route: 042
  7. METHOTREXATE [Concomitant]
     Route: 065
  8. LODOZ [Concomitant]
     Indication: HYPERTENSION
     Route: 065
  9. PYOSTACINE [Concomitant]
     Indication: SKIN INFECTION
     Route: 065
  10. AMOXICILLIN [Concomitant]
     Indication: SKIN INFECTION
     Route: 065
  11. AVK [Concomitant]
     Indication: PHLEBITIS
     Route: 065
  12. HGB LOW MOLECULAR WEIGHT [Concomitant]
     Indication: PHLEBITIS
     Route: 065

REACTIONS (7)
  - GRANULOMA SKIN [None]
  - LEUKOPENIA [None]
  - LIVER DISORDER [None]
  - NEUTROPENIA [None]
  - PHLEBITIS [None]
  - PSORIASIS [None]
  - SARCOIDOSIS [None]
